FAERS Safety Report 7471711-9 (Version None)
Quarter: 2011Q2

REPORT INFORMATION
  Report Type: 
  Country: None (occurrence: None)
  Receive Date: 20110511
  Receipt Date: 20110427
  Transmission Date: 20111010
  Serious: Yes (Other)
  Sender: FDA-Public Use
  Company Number: US-JNJFOC-20110412361

PATIENT
  Sex: Female

DRUGS (1)
  1. REMICADE [Suspect]
     Indication: PSORIASIS
     Route: 042

REACTIONS (5)
  - DYSPNOEA [None]
  - CHEST DISCOMFORT [None]
  - OXYGEN SATURATION DECREASED [None]
  - BLOOD PRESSURE INCREASED [None]
  - RASH [None]
